FAERS Safety Report 9233799 (Version 2)
Quarter: 2013Q2

REPORT INFORMATION
  Report Type: Spontaneous
  Country: US (occurrence: US)
  Receive Date: 20130416
  Receipt Date: 20130416
  Transmission Date: 20140414
  Serious: No
  Sender: FDA-Public Use
  Company Number: US-BANPHARM-20120018

PATIENT
  Age: 68 Year
  Sex: Female
  Weight: 73.18 kg

DRUGS (6)
  1. ALEVE LIQUID GELS 220 MG [Suspect]
     Indication: ARTHRITIS
     Route: 048
  2. ALEVE? - ANY TYPE [Suspect]
     Dosage: 2 DF, TWICE DAILY
     Route: 048
  3. METFORMIN [Concomitant]
  4. ZOLOFT [Concomitant]
  5. JANUVIA [Concomitant]
  6. ANOTHER DIABETIC PILL [Concomitant]

REACTIONS (2)
  - Drug ineffective [Unknown]
  - Inappropriate schedule of drug administration [Unknown]
